FAERS Safety Report 16088832 (Version 1)
Quarter: 2019Q1

REPORT INFORMATION
  Report Type: Spontaneous
  Country: ES (occurrence: ES)
  Receive Date: 20190319
  Receipt Date: 20190319
  Transmission Date: 20190418
  Serious: Yes (Other)
  Sender: FDA-Public Use
  Company Number: ES-LEO PHARMA-317390

PATIENT
  Sex: Male

DRUGS (1)
  1. PROTOPIC [Suspect]
     Active Substance: TACROLIMUS
     Indication: PRODUCT USED FOR UNKNOWN INDICATION
     Dosage: UNKNOWN - APPLICATION ON THE LIPS
     Route: 061
     Dates: start: 20190309

REACTIONS (3)
  - Eye pain [Unknown]
  - Application site discomfort [Unknown]
  - Herpes ophthalmic [Unknown]
